FAERS Safety Report 6344337-8 (Version None)
Quarter: 2009Q3

REPORT INFORMATION
  Report Type: 
  Country: None (occurrence: None)
  Receive Date: 20090821
  Receipt Date: 20090429
  Transmission Date: 20100115
  Serious: No
  Sender: FDA-Public Use
  Company Number: 8045529

PATIENT
  Age: 42 Year
  Sex: Female
  Weight: 60.9 kg

DRUGS (5)
  1. CIMZIA [Suspect]
     Indication: CROHN'S DISEASE
     Dosage: 400 MG SC
     Route: 058
     Dates: start: 20090420
  2. PREDNISONE [Concomitant]
  3. PENTASA [Concomitant]
  4. ACYCLOVIR [Concomitant]
  5. ACIPHEX [Concomitant]

REACTIONS (7)
  - ABDOMINAL DISTENSION [None]
  - ARTHRALGIA [None]
  - BREAST TENDERNESS [None]
  - DIZZINESS [None]
  - MUSCLE SPASMS [None]
  - MYALGIA [None]
  - NECK PAIN [None]
